FAERS Safety Report 16715656 (Version 8)
Quarter: 2021Q3

REPORT INFORMATION
  Report Type: Spontaneous
  Country: BR (occurrence: BR)
  Receive Date: 20190819
  Receipt Date: 20210806
  Transmission Date: 20211014
  Serious: Yes (Other)
  Sender: FDA-Public Use
  Company Number: BR-GLAXOSMITHKLINE-BR2019GSK094333

PATIENT
  Sex: Female
  Weight: 80 kg

DRUGS (2)
  1. NUCALA [Suspect]
     Active Substance: MEPOLIZUMAB
     Indication: ASTHMA
     Dosage: 100 MG/ML, Z  (MONTHLY)
     Dates: start: 20190415
  2. PREDNISONE. [Concomitant]
     Active Substance: PREDNISONE
     Indication: PRODUCT USED FOR UNKNOWN INDICATION
     Dosage: 5 MG, QOD

REACTIONS (13)
  - Oropharyngeal pain [Recovered/Resolved]
  - Influenza [Recovered/Resolved]
  - Product dispensing issue [Unknown]
  - Malaise [Recovered/Resolved]
  - C-reactive protein abnormal [Recovered/Resolved]
  - Asthmatic crisis [Not Recovered/Not Resolved]
  - Blood count abnormal [Recovered/Resolved]
  - Product availability issue [Unknown]
  - Product dose omission issue [Unknown]
  - Pain [Recovered/Resolved]
  - Disease recurrence [Unknown]
  - Headache [Recovered/Resolved]
  - Bronchitis [Recovered/Resolved]
